FAERS Safety Report 14109131 (Version 2)
Quarter: 2018Q1

REPORT INFORMATION
  Report Type: Spontaneous
  Country: US (occurrence: US)
  Receive Date: 20171019
  Receipt Date: 20180123
  Transmission Date: 20180508
  Serious: No
  Sender: FDA-Public Use
  Company Number: US-OTSUKA-2017_019035

PATIENT
  Age: 58 Year
  Sex: Female

DRUGS (4)
  1. REXULTI [Suspect]
     Active Substance: BREXPIPRAZOLE
     Indication: ADJUVANT THERAPY
  2. ABILIFY MAINTENA [Suspect]
     Active Substance: ARIPIPRAZOLE
     Indication: SCHIZOAFFECTIVE DISORDER
     Dosage: 400 MG, QM
     Route: 065
  3. ABILIFY MAINTENA [Suspect]
     Active Substance: ARIPIPRAZOLE
     Indication: ADJUVANT THERAPY
  4. REXULTI [Suspect]
     Active Substance: BREXPIPRAZOLE
     Indication: SCHIZOAFFECTIVE DISORDER
     Dosage: UNK
     Route: 048

REACTIONS (4)
  - Intentional product use issue [Unknown]
  - Hallucination, auditory [Unknown]
  - Off label use [Unknown]
  - Therapeutic response shortened [Unknown]
